FAERS Safety Report 4297443-6 (Version None)
Quarter: 2004Q1

REPORT INFORMATION
  Report Type: 
  Country: None (occurrence: None)
  Receive Date: 20040213
  Receipt Date: 20040206
  Transmission Date: 20041129
  Serious: Yes (Hospitalization, Other)
  Sender: FDA-Public Use
  Company Number: HQ0629011FEB2002

PATIENT
  Age: 59 Year
  Sex: Female

DRUGS (11)
  1. RAPAMUNE [Suspect]
     Indication: PROPHYLAXIS AGAINST TRANSPLANT REJECTION
     Dosage: 2 MG 1X PER 1 DAY
     Route: 048
     Dates: start: 19981020
  2. PREDNISOLONE [Concomitant]
  3. NEORAL (CICLOSPRIN) [Concomitant]
  4. ENALAPRIL MALEATE [Concomitant]
  5. POTASSIUM CHLORIDE [Concomitant]
  6. LASIX [Concomitant]
  7. ZOCOR [Concomitant]
  8. AMARYL [Concomitant]
  9. GLUCOR (ACARBOSE) [Concomitant]
  10. SODIUM BICARBONATE IN PLASTIC CONTAINER [Concomitant]
  11. RANITIDINE HYDROCHLORIDE [Concomitant]

REACTIONS (1)
  - AORTIC VALVE STENOSIS [None]
